FAERS Safety Report 8514171-9 (Version None)
Quarter: 2012Q3

REPORT INFORMATION
  Report Type: 
  Country: None (occurrence: None)
  Receive Date: 20120717
  Receipt Date: 20120706
  Transmission Date: 20120928
  Serious: Yes (Other)
  Sender: FDA-Public Use
  Company Number: FR-VERTEX PHARMACEUTICALS INC.-000000000000000960

PATIENT
  Sex: Female
  Weight: 70 kg

DRUGS (3)
  1. PEGASYS [Concomitant]
     Indication: HEPATITIS C
     Dates: start: 20120120
  2. INCIVO [Suspect]
     Indication: HEPATITIS C
     Dosage: DOSAGE FORM: TABLET
     Route: 048
     Dates: start: 20120120, end: 20120306
  3. COPEGUS [Concomitant]
     Indication: HEPATITIS C
     Dates: start: 20120120

REACTIONS (1)
  - RASH MACULO-PAPULAR [None]
